FAERS Safety Report 7954719-6 (Version None)
Quarter: 2011Q4

REPORT INFORMATION
  Report Type: 
  Country: None (occurrence: None)
  Receive Date: 20111202
  Receipt Date: 20111124
  Transmission Date: 20120403
  Serious: Yes (Hospitalization)
  Sender: FDA-Public Use
  Company Number: EG-ROCHE-1016240

PATIENT
  Age: 56 Year
  Sex: Female
  Weight: 70 kg

DRUGS (3)
  1. HERCEPTIN [Suspect]
     Indication: BREAST CANCER
     Route: 042
     Dates: start: 20110110, end: 20110831
  2. SILYMARIN [Concomitant]
     Indication: LIVER DISORDER
  3. ALBUMIN (HUMAN) [Concomitant]
     Indication: LIVER DISORDER
     Route: 042

REACTIONS (1)
  - HEPATIC ENCEPHALOPATHY [None]
